FAERS Safety Report 19313917 (Version 2)
Quarter: 2021Q2

REPORT INFORMATION
  Report Type: Spontaneous
  Country: CN (occurrence: CN)
  Receive Date: 20210527
  Receipt Date: 20210603
  Transmission Date: 20210717
  Serious: Yes (Death, Other)
  Sender: FDA-Public Use
  Company Number: CN-ROCHE-2837829

PATIENT
  Age: 79 Year
  Sex: Male
  Weight: 59.4 kg

DRUGS (8)
  1. CARBOPLATIN. [Concomitant]
     Active Substance: CARBOPLATIN
     Indication: SMALL CELL LUNG CANCER
     Dates: start: 20210312
  2. CARBOPLATIN. [Concomitant]
     Active Substance: CARBOPLATIN
     Dates: start: 20210515
  3. TECENTRIQ [Suspect]
     Active Substance: ATEZOLIZUMAB
     Indication: SMALL CELL LUNG CANCER
     Dosage: 1 DF=1 VIAL
     Route: 065
     Dates: start: 20210515
  4. ETOPOSIDE. [Concomitant]
     Active Substance: ETOPOSIDE
     Dates: start: 20210515
  5. METHYLPREDNISOLONE SODIUM SUCCINATE. [Concomitant]
     Active Substance: METHYLPREDNISOLONE SODIUM SUCCINATE
     Indication: SMALL CELL LUNG CANCER
     Dates: start: 20210519
  6. AVASTIN [Suspect]
     Active Substance: BEVACIZUMAB
     Route: 065
     Dates: start: 20210417
  7. AVASTIN [Suspect]
     Active Substance: BEVACIZUMAB
     Indication: SMALL CELL LUNG CANCER
     Route: 065
     Dates: start: 20210319
  8. ETOPOSIDE. [Concomitant]
     Active Substance: ETOPOSIDE
     Indication: SMALL CELL LUNG CANCER
     Dates: start: 20210312

REACTIONS (11)
  - Left ventricular dysfunction [Unknown]
  - Anaemia [Unknown]
  - Hydrothorax [Unknown]
  - Hepatic function abnormal [Unknown]
  - Platelet count decreased [Unknown]
  - Off label use [Unknown]
  - Pathological fracture [Unknown]
  - Oedema peripheral [Unknown]
  - Immune-mediated lung disease [Fatal]
  - Pneumonia [Unknown]
  - Pericardial effusion [Unknown]

NARRATIVE: CASE EVENT DATE: 202105
